FAERS Safety Report 9993446 (Version 3)
Quarter: 2014Q2

REPORT INFORMATION
  Report Type: Spontaneous
  Country: US (occurrence: US)
  Receive Date: 20140310
  Receipt Date: 20140425
  Transmission Date: 20141212
  Serious: Yes (Other)
  Sender: FDA-Public Use
  Company Number: US-009507513-1403USA003508

PATIENT
  Age: 4 Year
  Sex: Male

DRUGS (2)
  1. SINGULAIR [Suspect]
     Indication: ASTHMA
     Dosage: UNK
     Route: 048
     Dates: end: 2013
  2. SINGULAIR [Suspect]
     Indication: RHINITIS
     Dosage: UNK
     Route: 048

REACTIONS (6)
  - Status asthmaticus [Recovered/Resolved]
  - Nasopharyngitis [Unknown]
  - Wheezing [Unknown]
  - Flushing [Unknown]
  - Ear infection [Unknown]
  - Rash [Unknown]
